FAERS Safety Report 23103576 (Version 1)
Quarter: 2023Q4

REPORT INFORMATION
  Report Type: Spontaneous
  Country: US (occurrence: None)
  Receive Date: 20231022
  Receipt Date: 20231022
  Transmission Date: 20240110
  Serious: Yes (Hospitalization)
  Sender: FDA-Public Use
  Company Number: None

PATIENT
  Age: 81 Year
  Sex: Male
  Weight: 96.1 kg

DRUGS (2)
  1. HYDROCHLOROTHIAZIDE [Suspect]
     Active Substance: HYDROCHLOROTHIAZIDE
     Dosage: FREQUENCY : DAILY;?
     Route: 048
     Dates: start: 20150430, end: 20221220
  2. CHOLECALCIFEROL [Suspect]
     Active Substance: CHOLECALCIFEROL
     Dosage: OTHER STRENGTH : 1000UNIT;?FREQUENCY : DAILY;?
     Route: 048
     Dates: start: 20150430, end: 20221220

REACTIONS (4)
  - Hypercalcaemia [None]
  - Therapy cessation [None]
  - Urinary tract infection [None]
  - Acute kidney injury [None]

NARRATIVE: CASE EVENT DATE: 20221219
